FAERS Safety Report 19666705 (Version 1)
Quarter: 2021Q3

REPORT INFORMATION
  Report Type: Spontaneous
  Country: US (occurrence: US)
  Receive Date: 20210806
  Receipt Date: 20210806
  Transmission Date: 20211014
  Serious: Yes (Hospitalization, Other)
  Sender: FDA-Public Use
  Company Number: None

PATIENT
  Age: 61 Year
  Sex: Male

DRUGS (5)
  1. STELARA [Suspect]
     Active Substance: USTEKINUMAB
     Indication: PSORIASIS
     Dosage: ?          OTHER FREQUENCY:EVERY 12 WEEKS;?
     Route: 058
     Dates: start: 20180220
  2. MELOXICAM. [Concomitant]
     Active Substance: MELOXICAM
  3. METHYLPRED [Concomitant]
     Active Substance: METHYLPREDNISOLONE
  4. MODAFINIL. [Concomitant]
     Active Substance: MODAFINIL
  5. REPATHA [Suspect]
     Active Substance: EVOLOCUMAB
     Indication: ISCHAEMIC CARDIOMYOPATHY
     Dosage: ?          OTHER FREQUENCY:EVERY 2 WEEKS;?
     Route: 058
     Dates: start: 20201210

REACTIONS (1)
  - Knee arthroplasty [None]
